FAERS Safety Report 8407728-7 (Version None)
Quarter: 2012Q2

REPORT INFORMATION
  Report Type: 
  Country: None (occurrence: None)
  Receive Date: 20120604
  Receipt Date: 20120525
  Transmission Date: 20120825
  Serious: Yes (Hospitalization, Other)
  Sender: FDA-Public Use
  Company Number: CA-GLAXOSMITHKLINE-A0930123A

PATIENT
  Sex: Female
  Weight: 56.8 kg

DRUGS (33)
  1. ATROVENT [Suspect]
     Indication: PRODUCT USED FOR UNKNOWN INDICATION
     Route: 065
     Dates: start: 20111001
  2. OXYCODONE HYDROCHLORIDE [Concomitant]
     Dosage: 10MG AS REQUIRED
  3. PANTOPRAZOLE SODIUM [Concomitant]
     Dosage: 40MG TWICE PER DAY
  4. ARIMIDEX [Concomitant]
     Indication: LIFE EXPECTANCY SHORTENED
     Dosage: 1MG PER DAY
  5. VITAMIN D [Concomitant]
     Dosage: 100IU PER DAY
  6. CALCIUM CARBONATE [Concomitant]
     Dosage: 400MG PER DAY
  7. FOLIC ACID [Concomitant]
     Dosage: 1MG PER DAY
  8. GLUCOSAMINE [Concomitant]
     Dosage: 500MG PER DAY
  9. ALBUTEROL [Concomitant]
     Indication: PRODUCT USED FOR UNKNOWN INDICATION
     Dosage: 4PUFF SEE DOSAGE TEXT
     Route: 055
  10. OXYCODONE HYDROCHLORIDE [Concomitant]
     Dosage: 30MG THREE TIMES PER DAY
  11. SENOKOT [Concomitant]
  12. CALCIUM [Concomitant]
     Dosage: 500MG THREE TIMES PER DAY
  13. ZINC SULFATE [Concomitant]
     Dosage: 50MG PER DAY
  14. VITAMIN B1 TAB [Concomitant]
     Dosage: 100MG PER DAY
  15. TYLENOL W/ CODEINE NO. 3 [Concomitant]
  16. LYRICA [Concomitant]
     Dosage: 150MG TWICE PER DAY
  17. DIAZEPAM [Concomitant]
     Dosage: 10MG FOUR TIMES PER DAY
  18. DICLOFENAC SODIUM [Concomitant]
     Indication: BONE PAIN
  19. VITAMIN B6 [Concomitant]
     Dosage: 250MG PER DAY
  20. LOVAZA [Concomitant]
     Dosage: 1000MG TWICE PER DAY
  21. ADVAIR DISKUS 100/50 [Suspect]
     Indication: CHRONIC OBSTRUCTIVE PULMONARY DISEASE
     Dosage: 1PUFF TWICE PER DAY
     Route: 055
     Dates: start: 20101101
  22. FLOVENT [Suspect]
     Indication: PRODUCT USED FOR UNKNOWN INDICATION
     Dosage: 2PUFF TWICE PER DAY
     Route: 065
     Dates: end: 20101101
  23. BISACODYL [Concomitant]
  24. ASPIRIN [Concomitant]
     Dosage: 85MG PER DAY
  25. LISTERINE [Concomitant]
  26. ALENDRONATE SODIUM [Concomitant]
     Indication: OSTEOPOROSIS
     Dosage: 70MG WEEKLY
  27. VITAMIN B COMPLEX CAP [Concomitant]
  28. VITAMIN B-12 [Concomitant]
     Dosage: 1200MG PER DAY
  29. MOUTH RINSE [Concomitant]
  30. METOCLOPRAMIDE [Concomitant]
     Indication: GASTROINTESTINAL HYPOMOTILITY
     Dosage: 10MG TWICE PER DAY
  31. GRAVOL TAB [Concomitant]
     Dosage: 5MG FOUR TIMES PER DAY
  32. MAGNESIUM [Concomitant]
     Dosage: 250MG PER DAY
  33. HERCEPTIN [Concomitant]
     Indication: BREAST CANCER

REACTIONS (29)
  - MASS [None]
  - DRUG WITHDRAWAL SYNDROME [None]
  - ASTHENIA [None]
  - OROPHARYNGEAL PLAQUE [None]
  - LEUKOPLAKIA ORAL [None]
  - ORAL PAIN [None]
  - DYSPHONIA [None]
  - ORAL CANDIDIASIS [None]
  - POSTOPERATIVE WOUND COMPLICATION [None]
  - CARDIAC FAILURE CONGESTIVE [None]
  - GINGIVAL PAIN [None]
  - ORAL MUCOSAL EXFOLIATION [None]
  - PNEUMONIA [None]
  - INFLUENZA [None]
  - RESPIRATORY TRACT INFECTION [None]
  - SKIN EXFOLIATION [None]
  - WALKING AID USER [None]
  - CHAPPED LIPS [None]
  - DYSPNOEA [None]
  - ILL-DEFINED DISORDER [None]
  - STOMATITIS [None]
  - DYSPHAGIA [None]
  - TOOTH DEPOSIT [None]
  - DENTAL CARIES [None]
  - LOWER RESPIRATORY TRACT INFECTION [None]
  - BALANCE DISORDER [None]
  - POOR QUALITY SLEEP [None]
  - PRODUCTIVE COUGH [None]
  - CONVULSION [None]
